FAERS Safety Report 5280165-2 (Version None)
Quarter: 2007Q1

REPORT INFORMATION
  Report Type: 
  Country: None (occurrence: None)
  Receive Date: 20061215
  Receipt Date: 20060511
  Transmission Date: 20070707
  Serious: Yes (Other)
  Sender: FDA-Public Use
  Company Number: HQWYE309212MAY06

PATIENT
  Age: 53 Year
  Sex: Male

DRUGS (7)
  1. EFFEXOR XR [Suspect]
     Indication: DEPRESSION
     Dosage: 375 MG 1X PER 1 DAY, ORAL
     Route: 048
     Dates: start: 20060201
  2. PRILOSEC [Concomitant]
  3. VASOTEC [Concomitant]
  4. GABAPENTIN [Concomitant]
  5. KLONOPIN [Concomitant]
  6. MULTIVITAMINS (ASCORBIC ACID/ERGOCALCIFEROL/FOLIC ACID/NICOTINAMIDE/PA [Concomitant]
  7. HYTRIN [Concomitant]

REACTIONS (1)
  - CONVULSION [None]
